FAERS Safety Report 5288581-X (Version None)
Quarter: 2007Q2

REPORT INFORMATION
  Report Type: 
  Country: None (occurrence: None)
  Receive Date: 20070405
  Receipt Date: 20070403
  Transmission Date: 20071010
  Serious: Yes (Other)
  Sender: FDA-Public Use
  Company Number: JP-BRISTOL-MYERS SQUIBB COMPANY-13739818

PATIENT
  Age: 53 Year
  Sex: Female

DRUGS (2)
  1. PARAPLATIN [Suspect]
     Indication: UTERINE CANCER
     Route: 041
     Dates: start: 20070313
  2. TAXOTERE [Suspect]
     Indication: UTERINE CANCER
     Route: 042
     Dates: start: 20070313

REACTIONS (1)
  - DIPLOPIA [None]
